FAERS Safety Report 19694147 (Version 1)
Quarter: 2021Q3

REPORT INFORMATION
  Report Type: Spontaneous
  Country: FR (occurrence: FR)
  Receive Date: 20210812
  Receipt Date: 20210812
  Transmission Date: 20211014
  Serious: Yes (Life-Threatening, Hospitalization, Other)
  Sender: FDA-Public Use
  Company Number: FR-MYLANLABS-2021M1051263

PATIENT
  Age: 96 Year
  Sex: Female
  Weight: 55 kg

DRUGS (5)
  1. LEPONEX 25 MG, COMPRIME SECABLE [Suspect]
     Active Substance: CLOZAPINE
     Indication: PRODUCT USED FOR UNKNOWN INDICATION
     Dosage: 0.5 DOSAGE FORM, QD
     Route: 048
     Dates: start: 20200415, end: 20200505
  2. ENTRESTO [Concomitant]
     Active Substance: SACUBITRIL\VALSARTAN
     Dosage: 2 DOSAGE FORM, QD
     Route: 048
  3. BISOPROLOL                         /00802602/ [Concomitant]
     Active Substance: BISOPROLOL
     Dosage: 5 MILLIGRAM, QD
     Route: 048
  4. ESOMEPRAZOLE. [Concomitant]
     Active Substance: ESOMEPRAZOLE MAGNESIUM
     Dosage: 20 MILLIGRAM, QD
     Route: 048
  5. CODEINE PHOSPHATE W/PARACETAMOL [Concomitant]
     Active Substance: ACETAMINOPHEN\CODEINE PHOSPHATE
     Dosage: 1 DOSAGE FORM
     Route: 048

REACTIONS (2)
  - Disturbance in attention [Recovering/Resolving]
  - Respiratory distress [Recovering/Resolving]

NARRATIVE: CASE EVENT DATE: 20200504
